FAERS Safety Report 22592233 (Version 1)
Quarter: 2023Q2

REPORT INFORMATION
  Report Type: Report from Study
  Country: CA (occurrence: CA)
  Receive Date: 20230613
  Receipt Date: 20230613
  Transmission Date: 20230722
  Serious: Yes (Other)
  Sender: FDA-Public Use
  Company Number: CA-CELLTRION INC.-2023CA010915

PATIENT

DRUGS (1)
  1. TRUXIMA [Suspect]
     Active Substance: RITUXIMAB-ABBS
     Indication: Vasculitis
     Dosage: 500 MG
     Route: 042
     Dates: start: 20220510

REACTIONS (4)
  - Surgery [Unknown]
  - Ankle fracture [Unknown]
  - Scab [Unknown]
  - Intentional dose omission [Unknown]
